FAERS Safety Report 18660057 (Version 1)
Quarter: 2020Q4

REPORT INFORMATION
  Report Type: Spontaneous
  Country: CL (occurrence: CL)
  Receive Date: 20201223
  Receipt Date: 20201223
  Transmission Date: 20210114
  Serious: Yes (Other)
  Sender: FDA-Public Use
  Company Number: CL-US-PROVELL PHARMACEUTICALS LLC-9206781

PATIENT

DRUGS (1)
  1. EUTHYROX [Suspect]
     Active Substance: LEVOTHYROXINE SODIUM
     Indication: HYPOTHYROIDISM
     Dates: start: 1996

REACTIONS (5)
  - Tremor [Unknown]
  - Alopecia [Unknown]
  - Stress [Unknown]
  - Colon cancer [Unknown]
  - Insomnia [Unknown]

NARRATIVE: CASE EVENT DATE: 2019
